FAERS Safety Report 8807244 (Version 1)
Quarter: 2012Q4

REPORT INFORMATION
  Report Type: Report from Study
  Country: BR (occurrence: BR)
  Receive Date: 20120925
  Receipt Date: 20120925
  Transmission Date: 20130627
  Serious: Yes (Other)
  Sender: FDA-Public Use
  Company Number: BR-ABBOTT-12P-020-0981450-00

PATIENT
  Sex: Female
  Weight: 70 kg

DRUGS (5)
  1. HUMIRA [Suspect]
     Indication: ANKYLOSING SPONDYLITIS
     Route: 058
     Dates: start: 201010, end: 201010
  2. HUMIRA [Suspect]
     Route: 058
     Dates: start: 201209
  3. LOSARTAN [Concomitant]
     Indication: BLOOD PRESSURE
     Route: 048
     Dates: start: 201109
  4. FLUOXETINE [Concomitant]
     Indication: LABYRINTHITIS
     Dosage: 40 Milligram
     Route: 048
     Dates: start: 2007
  5. FLUOXETINE [Concomitant]
     Indication: HEADACHE

REACTIONS (4)
  - Granuloma [Unknown]
  - Tuberculosis [Unknown]
  - Tuberculin test positive [Recovered/Resolved]
  - Paraesthesia [Recovered/Resolved]
